FAERS Safety Report 6569429-X (Version None)
Quarter: 2010Q1

REPORT INFORMATION
  Report Type: 
  Country: None (occurrence: None)
  Receive Date: 20100202
  Receipt Date: 20100202
  Transmission Date: 20100710
  Serious: Yes (Disabling)
  Sender: FDA-Public Use
  Company Number: None

PATIENT
  Age: 56 Year
  Sex: Female
  Weight: 45.3597 kg

DRUGS (2)
  1. BONIVA [Suspect]
     Indication: OSTEOPOROSIS
     Dosage: 150 MG 1 PER MO ORAL
     Route: 048
     Dates: start: 20090715
  2. BONIVA [Suspect]
     Indication: BACK PAIN
     Dosage: 150 MG 1 PER MONTH ORAL
     Route: 048
     Dates: start: 20090717

REACTIONS (3)
  - ARTHRALGIA [None]
  - H1N1 INFLUENZA [None]
  - WEIGHT DECREASED [None]
